FAERS Safety Report 9976050 (Version 2)
Quarter: 2014Q2

REPORT INFORMATION
  Report Type: Report from Study
  Country: US (occurrence: US)
  Receive Date: 20140306
  Receipt Date: 20140506
  Transmission Date: 20141212
  Serious: Yes (Death, Other)
  Sender: FDA-Public Use
  Company Number: US-TMC-CABO 14004067

PATIENT
  Age: 57 Year
  Sex: Male

DRUGS (18)
  1. CABOZANTINIB [Suspect]
     Indication: PROSTATE CANCER
     Dosage: 100 MG, QD
     Route: 048
     Dates: start: 20140205, end: 20140224
  2. FLUTICASONE PROPIONATE [Concomitant]
  3. PREDNISONE [Concomitant]
  4. TAMSULOSIN [Concomitant]
  5. DORZOLAMIDE [Concomitant]
  6. LATANOPROST [Concomitant]
  7. FUROSEMIDE [Concomitant]
  8. KLOR-CON [Concomitant]
  9. PROCHLORPERAZINE [Concomitant]
  10. DOCUSATE [Concomitant]
  11. MTV [Concomitant]
  12. CALCIUM [Concomitant]
  13. MELATONIN [Concomitant]
  14. MAALOX [Concomitant]
  15. XGEVA [Concomitant]
  16. LUPRON [Concomitant]
  17. DUROGESIC [Concomitant]
  18. MORPHINE [Concomitant]

REACTIONS (3)
  - Malignant neoplasm progression [Fatal]
  - Metastases to central nervous system [Unknown]
  - Off label use [Unknown]
